FAERS Safety Report 9907271 (Version 1)
Quarter: 2014Q1

REPORT INFORMATION
  Report Type: Spontaneous
  Country: US (occurrence: US)
  Receive Date: 20140218
  Receipt Date: 20140218
  Transmission Date: 20141002
  Serious: No
  Sender: FDA-Public Use
  Company Number: US-ASTRAZENECA-2014SE02458

PATIENT
  Age: 50 Year
  Sex: Female
  Weight: 81.6 kg

DRUGS (19)
  1. ATENOLOL [Suspect]
     Indication: HYPERTENSION
     Route: 048
  2. NEXIUM [Suspect]
     Route: 048
  3. NEXIUM [Suspect]
     Route: 048
     Dates: start: 201310
  4. NEXIUM [Suspect]
     Route: 048
     Dates: end: 201312
  5. PRILOSEC [Suspect]
     Indication: GASTROOESOPHAGEAL REFLUX DISEASE
     Route: 048
  6. PRILOSEC [Suspect]
     Indication: GASTROOESOPHAGEAL REFLUX DISEASE
     Dosage: OMEPRAZOLE OTC
     Route: 048
     Dates: start: 201312
  7. DIAVAN [Concomitant]
     Indication: HYPERTENSION
  8. LASIX [Concomitant]
     Indication: HYPERTENSION
  9. NORVASC [Concomitant]
     Indication: HYPERTENSION
  10. KLONIDINE [Concomitant]
     Indication: HYPERTENSION
  11. LYRICA [Concomitant]
     Indication: FIBROMYALGIA
  12. CYMBALTA [Concomitant]
     Indication: FIBROMYALGIA
  13. FLEXERIL [Concomitant]
     Indication: FIBROMYALGIA
  14. LORTAB [Concomitant]
     Indication: PAIN
     Dosage: 10 325 MG PRN
  15. ZAROXOLYN [Concomitant]
     Indication: DIURETIC THERAPY
  16. KLOR CON [Concomitant]
     Indication: BLOOD POTASSIUM DECREASED
  17. JANUVIA [Concomitant]
     Indication: DIABETES MELLITUS
  18. AMARYL [Concomitant]
     Indication: DIABETES MELLITUS
  19. FOLATE [Concomitant]
     Indication: BLOOD FOLATE ABNORMAL
     Dates: start: 2013

REACTIONS (16)
  - Malaise [Unknown]
  - Throat irritation [Unknown]
  - Condition aggravated [Unknown]
  - Oropharyngeal pain [Unknown]
  - Abdominal pain [Unknown]
  - Gastrooesophageal reflux disease [Unknown]
  - Gastrooesophageal reflux disease [Unknown]
  - Cough [Unknown]
  - Hypokalaemia [Unknown]
  - Diabetes mellitus [Unknown]
  - Thirst [Unknown]
  - Blood folate abnormal [Unknown]
  - Drug dose omission [Unknown]
  - Intentional drug misuse [Unknown]
  - Off label use [Unknown]
  - Drug ineffective [Unknown]
